FAERS Safety Report 15328555 (Version 1)
Quarter: 2018Q3

REPORT INFORMATION
  Report Type: Spontaneous
  Country: RU (occurrence: RU)
  Receive Date: 20180829
  Receipt Date: 20180829
  Transmission Date: 20181010
  Serious: Yes (Other)
  Sender: FDA-Public Use
  Company Number: RU-ADIENNEP-2018AD000474

PATIENT
  Age: 13 Month
  Sex: Male

DRUGS (3)
  1. MYLERAN [Suspect]
     Active Substance: BUSULFAN
     Indication: STEM CELL TRANSPLANT
  2. FLUDARABINE PHOSPHATE. [Suspect]
     Active Substance: FLUDARABINE PHOSPHATE
     Indication: STEM CELL TRANSPLANT
  3. TEPADINA [Suspect]
     Active Substance: THIOTEPA
     Indication: STEM CELL TRANSPLANT
     Route: 042

REACTIONS (5)
  - Thrombotic microangiopathy [Unknown]
  - Hepatic vein occlusion [Unknown]
  - Graft versus host disease [Unknown]
  - Hypersensitivity [Unknown]
  - Gastrointestinal haemorrhage [Unknown]
